FAERS Safety Report 16926918 (Version 2)
Quarter: 2019Q4

REPORT INFORMATION
  Report Type: Spontaneous
  Country: US (occurrence: US)
  Receive Date: 20191016
  Receipt Date: 20191023
  Transmission Date: 20200122
  Serious: Yes (Hospitalization, Other)
  Sender: FDA-Public Use
  Company Number: US-PFIZER INC-2019442946

PATIENT
  Age: 27 Year
  Sex: Male

DRUGS (3)
  1. PHENCYCLIDINE [Concomitant]
     Active Substance: PHENCYCLIDINE
     Dosage: UNK
  2. HEROIN [Concomitant]
     Active Substance: DIAMORPHINE
     Dosage: UNK
     Route: 055
  3. FENTANYL CITRATE. [Suspect]
     Active Substance: FENTANYL CITRATE
     Indication: SUBSTANCE ABUSE
     Dosage: UNK

REACTIONS (8)
  - Respiratory failure [Recovering/Resolving]
  - Mitochondrial encephalomyopathy [Recovering/Resolving]
  - Product use in unapproved indication [Unknown]
  - Off label use [Unknown]
  - Neurotoxicity [Recovering/Resolving]
  - Toxic leukoencephalopathy [Recovering/Resolving]
  - Autonomic nervous system imbalance [Recovering/Resolving]
  - Drug abuse [Recovering/Resolving]
